FAERS Safety Report 9839007 (Version 2)
Quarter: 2014Q1

REPORT INFORMATION
  Report Type: Report from Study
  Country: NL (occurrence: NL)
  Receive Date: 20140123
  Receipt Date: 20140123
  Transmission Date: 20141002
  Serious: Yes (Hospitalization, Other)
  Sender: FDA-Public Use
  Company Number: NL-ABBVIE-10P-114-0673991-00

PATIENT
  Age: 61 Year
  Sex: Female
  Weight: 70 kg

DRUGS (8)
  1. HUMIRA 40 MG/0.8 ML PEN [Suspect]
     Indication: RHEUMATOID ARTHRITIS
     Route: 058
     Dates: start: 20070405, end: 200806
  2. HUMIRA 40 MG/0.8 ML PEN [Suspect]
     Route: 058
     Dates: start: 200806, end: 200911
  3. HUMIRA 40 MG/0.8 ML PEN [Suspect]
     Dates: start: 20091207, end: 201010
  4. HUMIRA 40 MG/0.8 ML PEN [Suspect]
     Dates: start: 20101208
  5. TEMPAZEPAM [Concomitant]
     Indication: INSOMNIA
     Dosage: PRN
     Route: 048
     Dates: start: 2000
  6. SOLG VIT D3 OF NATURE PHYSICIAN [Concomitant]
     Indication: OSTEOPOROSIS PROPHYLAXIS
     Route: 048
     Dates: start: 2006
  7. CALCLUMCOMPLEX OF NATURE PHYSICIAN [Concomitant]
     Indication: OSTEOPOROSIS PROPHYLAXIS
     Route: 048
     Dates: start: 2006
  8. VIT B12 OF NATURE PHYSICIAN [Concomitant]
     Indication: POLYNEUROPATHY
     Route: 048
     Dates: start: 200901

REACTIONS (6)
  - Diarrhoea [Not Recovered/Not Resolved]
  - Abdominal pain [Not Recovered/Not Resolved]
  - Colon neoplasm [Unknown]
  - Polyneuropathy [Not Recovered/Not Resolved]
  - Nausea [Unknown]
  - Rheumatoid arthritis [Unknown]
